FAERS Safety Report 11856579 (Version 3)
Quarter: 2016Q3

REPORT INFORMATION
  Report Type: Spontaneous
  Country: US (occurrence: US)
  Receive Date: 20151221
  Receipt Date: 20160715
  Transmission Date: 20161109
  Serious: Yes (Hospitalization)
  Sender: FDA-Public Use
  Company Number: US-PFIZER INC-2015457880

PATIENT
  Age: 28 Year
  Sex: Female

DRUGS (16)
  1. KETAMINE [Concomitant]
     Active Substance: KETAMINE
     Indication: SEDATION
     Dosage: 35 MG, UNK (35 MG/HR)
     Route: 041
  2. KETAMINE [Concomitant]
     Active Substance: KETAMINE
     Indication: PAIN
  3. ZOLEDRONIC ACID [Concomitant]
     Active Substance: ZOLEDRONIC ACID
     Indication: PAIN
     Dosage: UNK
  4. HYDROMORPHONE HYDROCHLORIDE. [Suspect]
     Active Substance: HYDROMORPHONE HYDROCHLORIDE
     Indication: PAIN
     Dosage: 2 MG, UNK (2 MG AS NEEDED EVERY 4 HOURS/2 MG, EVERY 4 HOURS, FREQ: AS NECESSARY)
  5. METHADONE [Suspect]
     Active Substance: METHADONE HYDROCHLORIDE
     Dosage: 900 MG, DAILY (900 MG/DAY)
  6. HYDROCODONE [Suspect]
     Active Substance: HYDROCODONE
     Indication: PAIN
     Dosage: UNK
  7. CYMBALTA [Concomitant]
     Active Substance: DULOXETINE HYDROCHLORIDE
     Indication: PAIN
     Dosage: 40 MG, DAILY (40 MG/DAY)
  8. CLONIDINE. [Concomitant]
     Active Substance: CLONIDINE
     Indication: PAIN
     Dosage: UNK
  9. FENTANYL CITRATE. [Suspect]
     Active Substance: FENTANYL CITRATE
     Indication: PAIN
     Dosage: UNK
  10. METHADONE [Suspect]
     Active Substance: METHADONE HYDROCHLORIDE
     Dosage: 600 MG, DAILY (600 MG/DAY)
  11. MORPHINE SULFATE. [Suspect]
     Active Substance: MORPHINE SULFATE
     Indication: PAIN
     Dosage: 120 MG, DAILY (120 MG/DAY)
  12. HYDROMORPHONE HYDROCHLORIDE. [Suspect]
     Active Substance: HYDROMORPHONE HYDROCHLORIDE
     Indication: SEDATION
  13. MIDAZOLAM [Concomitant]
     Active Substance: MIDAZOLAM\MIDAZOLAM HYDROCHLORIDE
     Indication: SEDATION
     Dosage: 4 MG, UNK (4 MG/HR)
     Route: 041
  14. METHADONE [Suspect]
     Active Substance: METHADONE HYDROCHLORIDE
     Indication: PAIN
     Dosage: 100 MG, DAILY (100 MG/DAY)
  15. MIDAZOLAM [Concomitant]
     Active Substance: MIDAZOLAM\MIDAZOLAM HYDROCHLORIDE
     Indication: PAIN
  16. GABAPENTIN. [Concomitant]
     Active Substance: GABAPENTIN
     Indication: PAIN
     Dosage: 2700 MG, DAILY (2700 MG/DAY)

REACTIONS (2)
  - Hyperaesthesia [Recovering/Resolving]
  - Drug tolerance [Recovering/Resolving]
